FAERS Safety Report 14446798 (Version 2)
Quarter: 2018Q1

REPORT INFORMATION
  Report Type: Report from Study
  Country: HU (occurrence: HU)
  Receive Date: 20180126
  Receipt Date: 20180128
  Transmission Date: 20180509
  Serious: Yes (Death, Hospitalization, Other)
  Sender: FDA-Public Use
  Company Number: PHHY2017HU067149

PATIENT
  Age: 51 Year
  Sex: Female
  Weight: 66 kg

DRUGS (12)
  1. TAFINLAR [Suspect]
     Active Substance: DABRAFENIB MESYLATE
     Dosage: 150 MG, BID
     Route: 065
  2. TAFINLAR [Suspect]
     Active Substance: DABRAFENIB MESYLATE
     Indication: MALIGNANT MELANOMA
     Dosage: 150 MG, BID
     Route: 065
     Dates: start: 20170206, end: 20170207
  3. LEVOTHYROXINE. [Concomitant]
     Active Substance: LEVOTHYROXINE
     Indication: PRODUCT USED FOR UNKNOWN INDICATION
     Dosage: 50 MCG/ML, QD
     Route: 065
  4. TAFINLAR [Suspect]
     Active Substance: DABRAFENIB MESYLATE
     Dosage: 75 MG, BID
     Route: 065
     Dates: start: 20170214
  5. ACETYLSALICYLIC ACID [Concomitant]
     Active Substance: ASPIRIN
     Indication: PRODUCT USED FOR UNKNOWN INDICATION
     Dosage: 100 MG, QD
     Route: 065
  6. TAFINLAR [Suspect]
     Active Substance: DABRAFENIB MESYLATE
     Dosage: 150 MG, BID
     Route: 065
     Dates: end: 20170214
  7. NEBIVOLOL. [Concomitant]
     Active Substance: NEBIVOLOL
     Indication: PRODUCT USED FOR UNKNOWN INDICATION
     Dosage: 0.5 DF, QD
     Route: 065
  8. PANTOPRAZOLE [Concomitant]
     Active Substance: PANTOPRAZOLE
     Indication: PRODUCT USED FOR UNKNOWN INDICATION
     Dosage: 40 MG, QD
     Route: 065
  9. TAFINLAR [Suspect]
     Active Substance: DABRAFENIB MESYLATE
     Dosage: 75 MG, QD
     Route: 065
  10. TAFINLAR [Suspect]
     Active Substance: DABRAFENIB MESYLATE
     Dosage: 75 MG, BID
     Route: 065
     Dates: start: 20170506
  11. MEKINIST [Suspect]
     Active Substance: TRAMETINIB DIMETHYL SULFOXIDE
     Indication: MALIGNANT MELANOMA
     Dosage: 2 MG, QD
     Route: 048
     Dates: start: 20170322
  12. LETROZOLE. [Concomitant]
     Active Substance: LETROZOLE
     Indication: BREAST CANCER
     Dosage: 2.5 MG, QD
     Route: 048
     Dates: start: 2015

REACTIONS (22)
  - Vomiting [Fatal]
  - Malaise [Recovered/Resolved]
  - Intracranial pressure increased [Unknown]
  - Pyrexia [Recovered/Resolved]
  - Hiccups [Unknown]
  - Muscular weakness [Fatal]
  - Conjunctival haemorrhage [Recovered/Resolved]
  - Eye haemorrhage [Unknown]
  - Malaise [Recovered/Resolved]
  - Dehydration [Fatal]
  - Transient ischaemic attack [Recovered/Resolved]
  - Malignant neoplasm progression [Unknown]
  - Confusional state [Fatal]
  - Confusional state [Recovered/Resolved]
  - Nausea [Recovered/Resolved]
  - Nausea [Fatal]
  - Respiratory arrest [Fatal]
  - Loss of consciousness [Fatal]
  - Malignant melanoma [Unknown]
  - Malaise [Recovered/Resolved]
  - Metastases to meninges [Fatal]
  - Speech disorder [Recovered/Resolved]

NARRATIVE: CASE EVENT DATE: 20170207
